FAERS Safety Report 5706617-6 (Version None)
Quarter: 2008Q2

REPORT INFORMATION
  Report Type: 
  Country: None (occurrence: None)
  Receive Date: 20080415
  Receipt Date: 20080402
  Transmission Date: 20081010
  Serious: No
  Sender: FDA-Public Use
  Company Number: US-ELI_LILLY_AND_COMPANY-US200804000715

PATIENT
  Sex: Female

DRUGS (11)
  1. CYMBALTA [Suspect]
     Indication: FIBROMYALGIA
     Dosage: 60 MG, UNK
     Dates: start: 20070901, end: 20080101
  2. IBUPROFEN [Concomitant]
     Dosage: 3200 MG, DAILY (1/D)
  3. LUNESTA [Concomitant]
  4. LIPITOR [Concomitant]
  5. LONOX [Concomitant]
  6. SOMA [Concomitant]
  7. LEXAPRO [Concomitant]
  8. SYNTHROID [Concomitant]
  9. NORCO [Concomitant]
  10. COMPAZINE [Concomitant]
  11. XANAX [Concomitant]

REACTIONS (1)
  - HEPATIC ENZYME INCREASED [None]
